FAERS Safety Report 5162239-X (Version None)
Quarter: 2006Q4

REPORT INFORMATION
  Report Type: 
  Country: None (occurrence: None)
  Receive Date: 20061121
  Receipt Date: 20061108
  Transmission Date: 20070319
  Serious: Yes (Other)
  Sender: FDA-Public Use
  Company Number: 136707

PATIENT
  Age: 8 Year
  Sex: Female

DRUGS (1)
  1. NIX [Suspect]
     Indication: LICE INFESTATION
     Dosage: 2 OZ APPLIC X 2 TO HEAD
     Dates: start: 20061012, end: 20061024

REACTIONS (2)
  - ASTHMA [None]
  - OXYGEN SATURATION DECREASED [None]
